FAERS Safety Report 9836586 (Version 1)
Quarter: 2013Q4

REPORT INFORMATION
  Report Type: Spontaneous
  Country: US (occurrence: None)
  Receive Date: 20131121
  Receipt Date: 20131121
  Transmission Date: 20140711
  Serious: No
  Sender: FDA-Public Use
  Company Number: 1000050229

PATIENT
  Age: 85 Year
  Sex: Male

DRUGS (7)
  1. TUDORZA PRESSAIR [Suspect]
     Indication: CHRONIC OBSTRUCTIVE PULMONARY DISEASE
     Dosage: 400 MCG, 2 IN 1 D
     Route: 055
     Dates: start: 20131009, end: 20131016
  2. FORADIL [Concomitant]
  3. LOVASTATIN [Concomitant]
  4. MIRAPEX [Concomitant]
  5. LORATADINE [Concomitant]
  6. AMLODIPINE [Concomitant]
  7. OMEPRAOLE [Concomitant]

REACTIONS (1)
  - Cough [None]
